FAERS Safety Report 5153968-2 (Version None)
Quarter: 2006Q4

REPORT INFORMATION
  Report Type: 
  Country: None (occurrence: None)
  Receive Date: 20061120
  Receipt Date: 20061106
  Transmission Date: 20070319
  Serious: Yes (Life-Threatening, Hospitalization)
  Sender: FDA-Public Use
  Company Number: NZ-ROCHE-470088

PATIENT
  Age: 68 Year
  Sex: Male
  Weight: 56.3 kg

DRUGS (8)
  1. CAPECITABINE [Suspect]
     Indication: COLORECTAL CANCER
     Dosage: ADMINISTERED TWICE DAILY / 7 DAYS, 2 WEEKLY.
     Route: 048
     Dates: start: 20060608, end: 20061026
  2. BEVACIZUMAB [Suspect]
     Indication: COLORECTAL CANCER
     Dosage: FREQUENCY: 2 WEEKLY. FORMULATION REPORTED AS SOLUTION FOR INFUSION.
     Route: 042
     Dates: start: 20060608, end: 20061026
  3. OXALIPLATIN [Suspect]
     Indication: COLORECTAL CANCER
     Dosage: FREQUENCY: 2 WEEKLY. FORMULATION REPORTED AS SOLUTION FOR INFUSION.
     Route: 042
     Dates: start: 20060608, end: 20061026
  4. METOPROLOL CR [Concomitant]
     Dosage: 190 MG OD ADMINISTERED FROM MAR 2004 - 27 SEP 2006.
     Dates: start: 20040315
  5. BENDROFLUAZIDE [Concomitant]
     Dates: start: 20031215
  6. ALLOPURINOL [Concomitant]
     Dates: start: 20060215
  7. LOPERAMIDE [Concomitant]
     Dates: start: 20061018
  8. METOCLOPRAMIDE [Concomitant]
     Route: 048
     Dates: start: 20060706

REACTIONS (5)
  - CONFUSIONAL STATE [None]
  - FALL [None]
  - GASTRIC PERFORATION [None]
  - SKELETAL INJURY [None]
  - SOMNOLENCE [None]
